FAERS Safety Report 19266139 (Version 3)
Quarter: 2021Q2

REPORT INFORMATION
  Report Type: Report from Study
  Country: GB (occurrence: GB)
  Receive Date: 20210518
  Receipt Date: 20210628
  Transmission Date: 20210717
  Serious: Yes (Other)
  Sender: FDA-Public Use
  Company Number: GB-IPSEN BIOPHARMACEUTICALS, INC.-2021-02358

PATIENT
  Age: 80 Year
  Sex: Male

DRUGS (1)
  1. SOMATULINE AUTOGEL [Suspect]
     Active Substance: LANREOTIDE ACETATE
     Indication: NEUROENDOCRINE TUMOUR
     Dosage: 120 MG/ 0.5 ML
     Route: 058

REACTIONS (9)
  - Renal impairment [Unknown]
  - Injection site mass [Unknown]
  - Rash [Unknown]
  - Complication of device insertion [Unknown]
  - Medical device site haemorrhage [Unknown]
  - Scan abnormal [Unknown]
  - Off label use [Unknown]
  - Disease progression [Unknown]
  - Failed examinations [Unknown]

NARRATIVE: CASE EVENT DATE: 20210601
